FAERS Safety Report 4721690-X (Version None)
Quarter: 2005Q3

REPORT INFORMATION
  Report Type: 
  Country: None (occurrence: None)
  Receive Date: 20050721
  Receipt Date: 20050228
  Transmission Date: 20060218
  Serious: No
  Sender: FDA-Public Use
  Company Number: US-BRISTOL-MYERS SQUIBB COMPANY-12879359

PATIENT
  Age: 64 Year
  Sex: Female
  Weight: 74 kg

DRUGS (13)
  1. COUMADIN [Suspect]
     Indication: ATRIAL FIBRILLATION
     Dosage: STARTED 11/03 FOR A DURATION OF 6 MONTHS FOR PULMONARY EMBOLISM, THEN RE-STARTED FOR ATRIAL FIB 7/04
     Route: 048
     Dates: start: 20031101
  2. COUMADIN [Suspect]
     Indication: PULMONARY EMBOLISM
     Dosage: STARTED 11/03 FOR A DURATION OF 6 MONTHS FOR PULMONARY EMBOLISM, THEN RE-STARTED FOR ATRIAL FIB 7/04
     Route: 048
     Dates: start: 20031101
  3. DIGOXIN [Concomitant]
  4. LASIX [Concomitant]
  5. ISOSORBIDE [Concomitant]
  6. ALTACE [Concomitant]
  7. ASPIRIN [Concomitant]
  8. SPIRIVA [Concomitant]
  9. FLONASE [Concomitant]
  10. ZOCOR [Concomitant]
  11. XANAX [Concomitant]
  12. CO-Q-10 [Concomitant]
  13. GRAPESEED EXTRACT [Concomitant]

REACTIONS (1)
  - INTERNATIONAL NORMALISED RATIO FLUCTUATION [None]
